FAERS Safety Report 20440797 (Version 3)
Quarter: 2025Q1

REPORT INFORMATION
  Report Type: Report from Study
  Country: US (occurrence: US)
  Receive Date: 20220207
  Receipt Date: 20250310
  Transmission Date: 20250409
  Serious: No
  Sender: AMGEN
  Company Number: US-AMGEN-USASP2022021137

PATIENT
  Age: 58 Year
  Sex: Male

DRUGS (12)
  1. OTEZLA [Suspect]
     Active Substance: APREMILAST
     Indication: Psoriasis
     Dosage: 30 MILLIGRAM, BID
     Route: 048
     Dates: start: 2023
  2. TRELEGY ELLIPTA [Concomitant]
     Active Substance: FLUTICASONE FUROATE\UMECLIDINIUM BROMIDE\VILANTEROL TRIFENATATE
     Dosage: 1 BLISTER, QWK 100-62.5-25MCG
  3. ALLOPURINOL [Concomitant]
     Active Substance: ALLOPURINOL
     Dosage: 100 MILLIGRAM, QD
     Route: 048
  4. AMLODIPINE [Concomitant]
     Active Substance: AMLODIPINE BESYLATE
     Dosage: 10 MILLIGRAM, QD
     Route: 048
  5. ATORVASTATIN [Concomitant]
     Active Substance: ATORVASTATIN
     Dosage: 20 MILLIGRAM, QD
     Route: 048
  6. EZETIMIBE [Concomitant]
     Active Substance: EZETIMIBE
     Dosage: 10 MILLIGRAM, QD
     Route: 048
  7. LISINOPRIL [Concomitant]
     Active Substance: LISINOPRIL
     Dosage: 20 MILLIGRAM, QD
     Route: 048
  8. MINOXIDIL [Concomitant]
     Active Substance: MINOXIDIL
     Indication: Androgenetic alopecia
     Dosage: 3 DOSAGE FORM, QD (2.5 MG)
     Route: 048
  9. NADOLOL [Concomitant]
     Active Substance: NADOLOL
     Dosage: 3 DOSAGE FORM, QD (20 MG)
     Route: 048
  10. OMEPRAZOLE [Concomitant]
     Active Substance: OMEPRAZOLE
     Dosage: 40 MILLIGRAM, QD
     Route: 048
  11. VITAMIN D3 [Concomitant]
     Active Substance: CHOLECALCIFEROL
     Dosage: 125 MICROGRAM, QWK
     Route: 048
  12. ZEPBOUND [Concomitant]
     Active Substance: TIRZEPATIDE
     Dosage: 5 MILLIGRAM/0.5 ML PEN INJECTOR
     Route: 058

REACTIONS (4)
  - Psoriasis [Recovered/Resolved]
  - Androgenetic alopecia [Unknown]
  - Stress [Unknown]
  - Arthralgia [Unknown]
